FAERS Safety Report 6780049-4 (Version None)
Quarter: 2010Q2

REPORT INFORMATION
  Report Type: 
  Country: None (occurrence: None)
  Receive Date: 20100618
  Receipt Date: 20100610
  Transmission Date: 20101027
  Serious: Yes (Death)
  Sender: FDA-Public Use
  Company Number: US-PFIZER INC-2010073424

PATIENT
  Sex: Male

DRUGS (1)
  1. CAMPTOSAR [Suspect]
     Indication: BONE NEOPLASM
     Dosage: 21 MG D1-5 AND D8-12

REACTIONS (1)
  - DEATH [None]
